FAERS Safety Report 12663746 (Version 1)
Quarter: 2016Q3

REPORT INFORMATION
  Report Type: Spontaneous
  Country: US (occurrence: US)
  Receive Date: 20160818
  Receipt Date: 20160818
  Transmission Date: 20161109
  Serious: No
  Sender: FDA-Public Use
  Company Number: US-ACADIA PHARMACEUTICALS INC.-ACA-2016-000164

PATIENT
  Sex: Female
  Weight: 58.96 kg

DRUGS (4)
  1. SINEMET [Concomitant]
     Active Substance: CARBIDOPA\LEVODOPA
     Indication: PARKINSON^S DISEASE
     Dosage: 7 X^S A DAY
  2. CLONAZEPAM. [Concomitant]
     Active Substance: CLONAZEPAM
     Indication: INSOMNIA
     Dosage: 0.5 MG TO 1 MG
  3. NUPLAZID [Suspect]
     Active Substance: PIMAVANSERIN TARTRATE
     Indication: PARKINSON^S DISEASE
     Dosage: 2 TABLET, QD
     Route: 048
     Dates: start: 20160625
  4. ENTACAPONE. [Concomitant]
     Active Substance: ENTACAPONE
     Indication: PARKINSON^S DISEASE
     Dosage: 200 MG, 5 X^S A DAY

REACTIONS (8)
  - Panic attack [Unknown]
  - Nervousness [Unknown]
  - Anxiety [Unknown]
  - Middle insomnia [Unknown]
  - Therapeutic response unexpected [None]
  - Obsessive-compulsive disorder [Unknown]
  - Heart rate increased [Unknown]
  - Respiratory rate increased [Unknown]

NARRATIVE: CASE EVENT DATE: 2016
